FAERS Safety Report 9776044 (Version 1)
Quarter: 2013Q4

REPORT INFORMATION
  Report Type: Spontaneous
  Country: AT (occurrence: None)
  Receive Date: 20131219
  Receipt Date: 20131219
  Transmission Date: 20140711
  Serious: Yes (Hospitalization)
  Sender: FDA-Public Use
  Company Number: KAD201312-001716

PATIENT
  Age: 52 Year
  Sex: Female

DRUGS (2)
  1. RIBAVIRIN (RIBAVIRIN) [Suspect]
     Indication: CHRONIC HEPATITIS C
  2. INTERFERON ALFACON-1 (INTERFERON ALFACON-1) [Suspect]
     Indication: CHRONIC HEPATITIS C

REACTIONS (8)
  - Lung adenocarcinoma [None]
  - General physical health deterioration [None]
  - Spinal cord disorder [None]
  - Metastasis [None]
  - Sensory loss [None]
  - Bladder dysfunction [None]
  - Paraplegia [None]
  - Functional gastrointestinal disorder [None]
